FAERS Safety Report 5332376-5 (Version None)
Quarter: 2007Q2

REPORT INFORMATION
  Report Type: 
  Country: None (occurrence: None)
  Receive Date: 20070523
  Receipt Date: 20070521
  Transmission Date: 20071010
  Serious: Yes (Other)
  Sender: FDA-Public Use
  Company Number: B0468976A

PATIENT
  Age: 28 Year
  Sex: Female

DRUGS (2)
  1. LAMICTAL [Suspect]
     Dosage: 400MG PER DAY
     Route: 048
     Dates: start: 20060101
  2. FOLIC ACID [Concomitant]
     Dosage: 5MG PER DAY
     Route: 048
     Dates: start: 20060313

REACTIONS (4)
  - CONVULSION [None]
  - DRUG EXPOSURE DURING PREGNANCY [None]
  - MASTITIS [None]
  - RASH [None]
